FAERS Safety Report 20615822 (Version 5)
Quarter: 2022Q3

REPORT INFORMATION
  Report Type: Report from Study
  Country: US (occurrence: US)
  Receive Date: 20220321
  Receipt Date: 20220809
  Transmission Date: 20221026
  Serious: Yes (Hospitalization)
  Sender: FDA-Public Use
  Company Number: US-NOVARTISTESTPH-NVSC2022US063503

PATIENT
  Sex: Female

DRUGS (2)
  1. PIQRAY [Suspect]
     Active Substance: ALPELISIB
     Indication: Breast cancer
     Dosage: 300 MG, BID
     Route: 048
     Dates: start: 20220309, end: 20220421
  2. PIQRAY [Suspect]
     Active Substance: ALPELISIB
     Indication: Rash
     Dosage: 300 MG, QD
     Route: 065
     Dates: start: 20220314

REACTIONS (11)
  - Hypersensitivity [Unknown]
  - Rash [Unknown]
  - Hyperglycaemia [Unknown]
  - Thirst [Unknown]
  - Fatigue [Unknown]
  - Dyspepsia [Unknown]
  - Ageusia [Unknown]
  - Taste disorder [Unknown]
  - Feeling abnormal [Unknown]
  - Stress [Unknown]
  - Depressed mood [Unknown]
